FAERS Safety Report 6930938-2 (Version None)
Quarter: 2010Q3

REPORT INFORMATION
  Report Type: 
  Country: None (occurrence: None)
  Receive Date: 20100818
  Receipt Date: 20100811
  Transmission Date: 20110219
  Serious: Yes (Hospitalization, Other)
  Sender: FDA-Public Use
  Company Number: US-RB-014022-10

PATIENT
  Age: 33 Year
  Sex: Female

DRUGS (1)
  1. SUBOXONE [Suspect]
     Indication: DRUG DEPENDENCE
     Dosage: WAS TAKING INTERMITTENTLY
     Route: 060
     Dates: start: 20091101, end: 20100808

REACTIONS (2)
  - POSTOPERATIVE THORACIC PROCEDURE COMPLICATION [None]
  - SLEEP APNOEA SYNDROME [None]
